FAERS Safety Report 7010416-5 (Version None)
Quarter: 2010Q3

REPORT INFORMATION
  Report Type: 
  Country: None (occurrence: None)
  Receive Date: 20100923
  Receipt Date: 20100820
  Transmission Date: 20110219
  Serious: No
  Sender: FDA-Public Use
  Company Number: US-BAUSCH-2010BL004641

PATIENT
  Sex: Female

DRUGS (2)
  1. BESIVANCE [Suspect]
     Indication: POSTOPERATIVE CARE
     Route: 047
  2. BESIVANCE [Suspect]
     Indication: OFF LABEL USE
     Route: 047

REACTIONS (1)
  - EYE PAIN [None]
